FAERS Safety Report 10253024 (Version 2)
Quarter: 2014Q2

REPORT INFORMATION
  Report Type: Report from Study
  Country: US (occurrence: US)
  Receive Date: 20140623
  Receipt Date: 20140623
  Transmission Date: 20141212
  Serious: Yes (Hospitalization)
  Sender: FDA-Public Use
  Company Number: US-ROCHE-1339701

PATIENT
  Age: 37 Year
  Sex: Female
  Weight: 55.8 kg

DRUGS (22)
  1. MPDL3280A [Suspect]
     Indication: NEOPLASM MALIGNANT
     Dosage: MOST RECENT DOSE PRIOR TO ABDOMINAL PAIN: 778 MG ON 15/JAN/2014
     Route: 042
     Dates: start: 20130626
  2. BEVACIZUMAB [Suspect]
     Indication: NEOPLASM MALIGNANT
     Dosage: MOST RECENT DOSE PRIOR TO ABDOMINAL PAIN: 556 MG ON 13/NOV/2013
     Route: 042
     Dates: start: 20130626
  3. OXALIPLATIN [Suspect]
     Indication: NEOPLASM MALIGNANT
     Dosage: MOST RECENT DOSE PRIOR TO ABDOMINAL PAIN: 105 MG ON 18/SEP/2013
     Route: 042
     Dates: start: 20130626
  4. LEUCOVORIN CALCIUM [Suspect]
     Indication: NEOPLASM MALIGNANT
     Dosage: MOST RECENT DOSE PRIOR TO ABDOMINAL PAIN: 652 MG ON 04/DEC/2013
     Route: 042
     Dates: start: 20130626
  5. FLUOROURACIL [Suspect]
     Indication: NEOPLASM MALIGNANT
     Dosage: MOST RECENT DOSE PRIOR TO ABDOMINAL PAIN: 326 MG ON 04/SEP/2013
     Route: 040
     Dates: start: 20130626
  6. FLUOROURACIL [Suspect]
     Indication: NEOPLASM MALIGNANT
     Dosage: MOST RECENT DOSE PRIOR TO ABDOMINAL PAIN: 3280 MG ON 04/DEC/2013
     Route: 042
     Dates: start: 20130626
  7. FIBER SUPPLEMENT [Concomitant]
     Indication: CONSTIPATION
     Route: 048
  8. ACETAMINOPHEN [Concomitant]
     Indication: BACK PAIN
     Route: 048
  9. PERCOCET [Concomitant]
     Indication: BACK PAIN
     Route: 048
  10. DOCUSATE [Concomitant]
     Indication: CONSTIPATION
     Route: 048
  11. MIRALAX [Concomitant]
     Indication: CONSTIPATION
     Route: 048
     Dates: start: 20130626
  12. IBUPROFEN [Concomitant]
     Indication: PAIN
     Route: 048
     Dates: start: 20130703
  13. OXAZEPAM [Concomitant]
     Indication: ANXIETY
     Route: 048
     Dates: start: 20130703
  14. ZOFRAN [Concomitant]
     Indication: NAUSEA
     Route: 048
     Dates: start: 20130703
  15. ZOFRAN [Concomitant]
     Route: 042
     Dates: start: 20140124, end: 20140128
  16. ATIVAN [Concomitant]
     Indication: ANXIETY
     Route: 042
     Dates: start: 20130711, end: 20130711
  17. ATIVAN [Concomitant]
     Route: 048
     Dates: start: 20130712
  18. FLEXERIL (UNITED STATES) [Concomitant]
     Indication: BACK PAIN
     Route: 048
  19. NYSTATIN [Concomitant]
     Indication: MUCOSAL INFECTION
     Route: 048
     Dates: start: 20130718, end: 20130724
  20. PRILOSEC [Concomitant]
     Indication: DYSPEPSIA
     Route: 048
     Dates: start: 20130801, end: 20130806
  21. COLACE [Concomitant]
     Indication: CONSTIPATION
     Route: 048
     Dates: start: 20130918
  22. LORAZEPAM [Concomitant]
     Indication: ANXIETY
     Route: 048
     Dates: start: 20140128

REACTIONS (1)
  - Pneumoperitoneum [Not Recovered/Not Resolved]
